FAERS Safety Report 15961176 (Version 3)
Quarter: 2019Q2

REPORT INFORMATION
  Report Type: Spontaneous
  Country: US (occurrence: US)
  Receive Date: 20190214
  Receipt Date: 20190416
  Transmission Date: 20190711
  Serious: No
  Sender: FDA-Public Use
  Company Number: US-PFIZER INC-2019057523

PATIENT
  Age: 12 Year
  Sex: Female
  Weight: 37.65 kg

DRUGS (7)
  1. GENOTROPIN [Suspect]
     Active Substance: SOMATROPIN
     Indication: BLOOD GROWTH HORMONE ABNORMAL
     Dosage: 1.1 MG, ONE TIME
     Dates: start: 20190121
  2. DDAVP [Concomitant]
     Active Substance: DESMOPRESSIN ACETATE
     Indication: BLOOD GLUCOSE ABNORMAL
     Dosage: 5 MG, 2X/DAY
  3. SYNTHROID [Concomitant]
     Active Substance: LEVOTHYROXINE SODIUM
     Indication: THYROID DISORDER
     Dosage: 10 MG, 1X/DAY
  4. GENOTROPIN [Suspect]
     Active Substance: SOMATROPIN
     Indication: PITUITARY TUMOUR
     Dosage: 1.1 MG, 1X/DAY (INJECTION IN EITHER LEG, THE STOMACH, OR BUTT)
     Dates: start: 20190131
  5. DDAVP [Concomitant]
     Active Substance: DESMOPRESSIN ACETATE
     Indication: BLADDER DISORDER
  6. GENOTROPIN [Suspect]
     Active Substance: SOMATROPIN
     Dosage: UNK
  7. IMITREX [Concomitant]
     Active Substance: SUMATRIPTAN SUCCINATE
     Indication: MIGRAINE
     Dosage: 50 MG, AS NEEDED

REACTIONS (5)
  - Product dose omission [Unknown]
  - Wrong technique in device usage process [Unknown]
  - Abdominal pain upper [Not Recovered/Not Resolved]
  - Headache [Not Recovered/Not Resolved]
  - Malaise [Not Recovered/Not Resolved]

NARRATIVE: CASE EVENT DATE: 20190131
